FAERS Safety Report 4360108-6 (Version None)
Quarter: 2004Q2

REPORT INFORMATION
  Report Type: 
  Country: None (occurrence: None)
  Receive Date: 20040519
  Receipt Date: 20040512
  Transmission Date: 20050107
  Serious: Yes (Hospitalization)
  Sender: FDA-Public Use
  Company Number: BR-BRISTOL-MYERS SQUIBB COMPANY-12586517

PATIENT
  Age: 83 Year
  Sex: Female

DRUGS (5)
  1. TEQUIN [Suspect]
     Indication: URINARY TRACT INFECTION
     Route: 048
     Dates: start: 20040101
  2. ALDACTONE [Concomitant]
  3. CAPTOPRIL [Concomitant]
  4. FUROSEMIDE [Concomitant]
  5. MULTI-VITAMIN [Concomitant]

REACTIONS (2)
  - CONVULSION [None]
  - DIABETES MELLITUS [None]
